FAERS Safety Report 24388494 (Version 1)
Quarter: 2024Q4

REPORT INFORMATION
  Report Type: Report from Study
  Country: US (occurrence: US)
  Receive Date: 20241002
  Receipt Date: 20241002
  Transmission Date: 20250115
  Serious: Yes (Other)
  Sender: ALNYLAM PHARMACEUTICALS
  Company Number: US-ALNYLAM PHARMACEUTICALS, INC.-ALN-2024-005352

PATIENT

DRUGS (1)
  1. GIVLAARI [Suspect]
     Active Substance: GIVOSIRAN SODIUM
     Indication: Porphyria acute
     Dosage: 250 MILLIGRAM, EVERY 28 DAYS (189 MG/ML VIALS)
     Route: 058
     Dates: start: 20231213, end: 20231213

REACTIONS (5)
  - Leukopenia [Unknown]
  - Porphyria acute [Unknown]
  - Arthritis [Unknown]
  - Injection site pain [Recovered/Resolved]
  - Stress [Unknown]

NARRATIVE: CASE EVENT DATE: 20240912
